FAERS Safety Report 19327941 (Version 1)
Quarter: 2021Q2

REPORT INFORMATION
  Report Type: Spontaneous
  Country: CN (occurrence: CN)
  Receive Date: 20210528
  Receipt Date: 20210528
  Transmission Date: 20210717
  Serious: Yes (Other)
  Sender: FDA-Public Use
  Company Number: CN-B.BRAUN MEDICAL INC.-2112091

PATIENT
  Age: 82 Year
  Sex: Female

DRUGS (2)
  1. SODIUM CHLORIDE INJECTIONS USP 0264?7800?00 0264?7800?10 [Suspect]
     Active Substance: SODIUM CHLORIDE
     Indication: INJECTION
     Route: 041
     Dates: start: 20210513, end: 20210515
  2. LIGUSTRAZINE HYDROCHLORIDE INJECTION [Concomitant]
     Route: 041
     Dates: start: 20210513, end: 20210515

REACTIONS (1)
  - Pain in extremity [Recovered/Resolved]
